FAERS Safety Report 5622352-7 (Version None)
Quarter: 2008Q1

REPORT INFORMATION
  Report Type: 
  Country: None (occurrence: None)
  Receive Date: 20080211
  Receipt Date: 20080131
  Transmission Date: 20080703
  Serious: No
  Sender: FDA-Public Use
  Company Number: US-BAXTER-2008BH000795

PATIENT
  Age: 38 Year
  Sex: Female

DRUGS (2)
  1. HEPARIN SODIUM [Suspect]
     Indication: PROPHYLAXIS
     Dosage: DOSE UNIT:UNKNOWN
     Route: 010
     Dates: start: 20071201
  2. DIANEAL [Concomitant]
     Indication: PERITONEAL DIALYSIS
     Route: 065
     Dates: start: 20071001

REACTIONS (6)
  - DIARRHOEA [None]
  - GASTRITIS [None]
  - HYPERHIDROSIS [None]
  - NAUSEA [None]
  - PERITONITIS [None]
  - VOMITING [None]
